FAERS Safety Report 8977823 (Version 2)
Quarter: 2013Q1

REPORT INFORMATION
  Report Type: Report from Study
  Country: DE (occurrence: DE)
  Receive Date: 20121219
  Receipt Date: 20130205
  Transmission Date: 20140127
  Serious: Yes (Congenital Anomaly)
  Sender: FDA-Public Use
  Company Number: DE-UCBSA-073207

PATIENT
  Sex: 0

DRUGS (3)
  1. LEVETIRACETAM [Suspect]
     Indication: EPILEPSY
     Route: 064
     Dates: start: 20051110
  2. CARBAMAZEPINE [Suspect]
     Indication: EPILEPSY
     Route: 064
     Dates: start: 20051110
  3. CLONAZEPAM [Suspect]
     Indication: EPILEPSY
     Route: 064
     Dates: start: 20051110

REACTIONS (2)
  - Congenital inguinal hernia [Unknown]
  - Foetal exposure during pregnancy [Recovered/Resolved]
